FAERS Safety Report 4565286-1 (Version None)
Quarter: 2005Q1

REPORT INFORMATION
  Report Type: 
  Country: None (occurrence: None)
  Receive Date: 20050131
  Receipt Date: 20050119
  Transmission Date: 20050727
  Serious: Yes (Hospitalization)
  Sender: FDA-Public Use
  Company Number: IT-MERCK-0501ITA00024

PATIENT
  Age: 24 Year
  Sex: Male

DRUGS (5)
  1. SINGULAIR [Suspect]
     Indication: ASTHMA
     Route: 048
     Dates: start: 20020201
  2. FORMOTEROL FUMARATE [Concomitant]
     Indication: ASTHMA
     Route: 055
     Dates: start: 20001101
  3. FLUTICASONE PROPIONATE [Concomitant]
     Indication: ASTHMA
     Route: 055
     Dates: start: 20001101
  4. ALBUTEROL [Concomitant]
     Indication: ASTHMA
     Route: 055
     Dates: start: 20020201
  5. BUDESONIDE [Concomitant]
     Indication: ASTHMA
     Route: 055
     Dates: start: 20020201

REACTIONS (20)
  - ABDOMINAL PAIN [None]
  - ALLERGIC GRANULOMATOUS ANGIITIS [None]
  - ATRIAL FIBRILLATION [None]
  - DIARRHOEA HAEMORRHAGIC [None]
  - EROSIVE DUODENITIS [None]
  - GASTRIC ULCER [None]
  - HAEMOGLOBINURIA [None]
  - HELICOBACTER INFECTION [None]
  - HYPERTENSION [None]
  - HYPOAESTHESIA [None]
  - MONONEUROPATHY MULTIPLEX [None]
  - OEDEMA PERIPHERAL [None]
  - PAIN IN EXTREMITY [None]
  - PARAESTHESIA [None]
  - PERONEAL NERVE PALSY [None]
  - PROTEINURIA [None]
  - PYREXIA [None]
  - SUBCUTANEOUS NODULE [None]
  - WEIGHT DECREASED [None]
  - WEIGHT INCREASED [None]
